FAERS Safety Report 16473064 (Version 4)
Quarter: 2020Q4

REPORT INFORMATION
  Report Type: Report from Study
  Country: None (occurrence: IL)
  Receive Date: 20190625
  Receipt Date: 20201201
  Transmission Date: 20210113
  Serious: Yes (Hospitalization, Other)
  Sender: FDA-Public Use
  Company Number: IL-ABBVIE-19K-082-2830696-00

PATIENT
  Age: 61 Year
  Sex: Female

DRUGS (3)
  1. HUMIRA [Suspect]
     Active Substance: ADALIMUMAB
     Indication: CROHN^S DISEASE
     Route: 058
     Dates: start: 20180401
  2. HUMIRA [Suspect]
     Active Substance: ADALIMUMAB
     Indication: PSORIASIS
  3. HUMIRA [Suspect]
     Active Substance: ADALIMUMAB
     Indication: RHEUMATOID ARTHRITIS

REACTIONS (25)
  - Malaise [Unknown]
  - Asthenia [Not Recovered/Not Resolved]
  - Ligament injury [Unknown]
  - Gait disturbance [Unknown]
  - Frequent bowel movements [Recovered/Resolved]
  - Glucose tolerance decreased [Unknown]
  - Mobility decreased [Recovering/Resolving]
  - Musculoskeletal disorder [Recovering/Resolving]
  - Injection site erythema [Unknown]
  - Fatigue [Recovered/Resolved]
  - Therapeutic product effect incomplete [Not Recovered/Not Resolved]
  - Pain in extremity [Recovering/Resolving]
  - Feeling abnormal [Unknown]
  - Energy increased [Recovered/Resolved]
  - Skeletal injury [Unknown]
  - Insomnia [Recovering/Resolving]
  - Haematochezia [Unknown]
  - Haemorrhoids [Unknown]
  - C-reactive protein decreased [Unknown]
  - Limb crushing injury [Unknown]
  - Injection site extravasation [Unknown]
  - Device issue [Unknown]
  - Faecal calprotectin increased [Not Recovered/Not Resolved]
  - Peripheral nerve injury [Recovering/Resolving]
  - Nausea [Not Recovered/Not Resolved]

NARRATIVE: CASE EVENT DATE: 2019
